FAERS Safety Report 10382500 (Version 2)
Quarter: 2014Q3

REPORT INFORMATION
  Report Type: Spontaneous
  Country: US (occurrence: US)
  Receive Date: 20140813
  Receipt Date: 20140813
  Transmission Date: 20150326
  Serious: Yes (Hospitalization, Other)
  Sender: FDA-Public Use
  Company Number: US-009507513-2006-139623-NL

PATIENT
  Sex: Female
  Weight: 54.43 kg

DRUGS (2)
  1. NUVARING [Suspect]
     Active Substance: ETHINYL ESTRADIOL\ETONOGESTREL
     Indication: CONTRACEPTION
     Dosage: CONTINUING: NO
     Route: 067
     Dates: start: 20030903, end: 20060305
  2. SYNTHROID [Concomitant]
     Active Substance: LEVOTHYROXINE SODIUM
     Indication: GOITRE
     Dosage: 50 ?G, QD
     Route: 048
     Dates: start: 2000

REACTIONS (15)
  - Ovarian cyst [Unknown]
  - Pulmonary embolism [Recovered/Resolved]
  - Pulmonary infarction [Unknown]
  - Mitral valve prolapse [Unknown]
  - Haematuria [Unknown]
  - Urinary tract infection [Unknown]
  - Lobar pneumonia [Unknown]
  - Leukocytosis [Unknown]
  - Gastrooesophageal reflux disease [Unknown]
  - Aortic valve incompetence [Unknown]
  - Vitamin B12 deficiency [Unknown]
  - Neuropathy peripheral [Unknown]
  - Mammoplasty [Unknown]
  - Uterine leiomyoma [Unknown]
  - Abdominal pain upper [Unknown]

NARRATIVE: CASE EVENT DATE: 2003
